FAERS Safety Report 6448001-6 (Version None)
Quarter: 2009Q4

REPORT INFORMATION
  Report Type: 
  Country: None (occurrence: None)
  Receive Date: 20091120
  Receipt Date: 20091110
  Transmission Date: 20100525
  Serious: Yes (Other)
  Sender: FDA-Public Use
  Company Number: PL-ROCHE-661830

PATIENT
  Sex: Female
  Weight: 57 kg

DRUGS (2)
  1. BONIVA [Suspect]
     Indication: OSTEOPOROSIS
     Dosage: STOP DATE: OCTOBER 2009.
     Route: 048
     Dates: start: 20090201
  2. CALCIUM [Concomitant]

REACTIONS (2)
  - ALOPECIA [None]
  - DRUG INEFFECTIVE [None]
